FAERS Safety Report 21312802 (Version 1)
Quarter: 2022Q3

REPORT INFORMATION
  Report Type: Spontaneous
  Country: JP (occurrence: JP)
  Receive Date: 20220909
  Receipt Date: 20220909
  Transmission Date: 20221027
  Serious: Yes (Hospitalization, Other)
  Sender: FDA-Public Use
  Company Number: JP-PFIZER INC-PV202200053221

PATIENT
  Age: 3 Decade
  Sex: Female
  Weight: 58.5 kg

DRUGS (6)
  1. CELECOXIB [Suspect]
     Active Substance: CELECOXIB
     Dosage: 1800 MG (18 TABS OF 100 MG)
  2. LACOSAMIDE [Suspect]
     Active Substance: LACOSAMIDE
     Dosage: 16400 MG (328 TABS OF 50MG)
  3. PERAMPANEL [Suspect]
     Active Substance: PERAMPANEL
     Dosage: 162 MG (81 TABS OF 2MG))
  4. CYANOCOBALAMIN\LIDOCAINE HYDROCHLORIDE\PYRIDOXINE HYDROCHLORIDE\THIAMI [Suspect]
     Active Substance: CYANOCOBALAMIN\LIDOCAINE HYDROCHLORIDE\PYRIDOXINE HYDROCHLORIDE\THIAMINE HYDROCHLORIDE
     Dosage: 216 DF (54 TABS OF 4 UNITS)
  5. REBAMIPIDE [Suspect]
     Active Substance: REBAMIPIDE
     Dosage: 2600 MG (26 TABS OF 100 MG)
  6. LOXOPROFEN SODIUM [Suspect]
     Active Substance: LOXOPROFEN SODIUM
     Dosage: 120 MG  (2 ABS OF 60 MG)

REACTIONS (2)
  - Toxicity to various agents [Recovering/Resolving]
  - Overdose [Unknown]
